FAERS Safety Report 9338805 (Version 1)
Quarter: 2013Q2

REPORT INFORMATION
  Report Type: Spontaneous
  Country: US (occurrence: US)
  Receive Date: 20130610
  Receipt Date: 20130610
  Transmission Date: 20140414
  Serious: No
  Sender: FDA-Public Use
  Company Number: US-BAYER-2013-069471

PATIENT
  Age: 84 Year
  Sex: Female
  Weight: 58.96 kg

DRUGS (8)
  1. ALEVE CAPLET [Suspect]
     Indication: ARTHRITIS
     Dosage: 1 DF, BID
     Route: 048
     Dates: start: 2010
  2. AGGRENOX [Concomitant]
  3. AMLODIPINE [Concomitant]
  4. SIMVASTATIN [Concomitant]
  5. VITAMIN D [Concomitant]
  6. MAGNESIUM [Concomitant]
  7. CENTRUM [MINERALS NOS,VITAMINS NOS] [Concomitant]
  8. GLUCOSAMINE [Concomitant]

REACTIONS (1)
  - Incorrect drug administration duration [None]
